FAERS Safety Report 5324417-6 (Version None)
Quarter: 2007Q2

REPORT INFORMATION
  Report Type: 
  Country: None (occurrence: None)
  Receive Date: 20070514
  Receipt Date: 20070507
  Transmission Date: 20071010
  Serious: Yes (Hospitalization, Disabling, Other)
  Sender: FDA-Public Use
  Company Number: US-MERCK-0612USA03079

PATIENT
  Age: 56 Year
  Sex: Female

DRUGS (4)
  1. FOSAMAX [Suspect]
     Indication: OSTEOPOROSIS PROPHYLAXIS
     Route: 048
     Dates: end: 20000101
  2. FOSAMAX [Suspect]
     Route: 048
     Dates: start: 20000101, end: 20051201
  3. FOSAMAX [Suspect]
     Route: 048
     Dates: start: 19990114
  4. ACTONEL [Suspect]
     Route: 065
     Dates: start: 20051201, end: 20060707

REACTIONS (26)
  - ANORGASMIA [None]
  - ANXIETY [None]
  - APPENDICITIS [None]
  - BURNING SENSATION [None]
  - DENTAL CARIES [None]
  - EXOSTOSIS [None]
  - GALLBLADDER DISORDER [None]
  - GINGIVAL INFECTION [None]
  - HAND FRACTURE [None]
  - IMPAIRED HEALING [None]
  - JOINT INJURY [None]
  - LIMB INJURY [None]
  - OEDEMA MOUTH [None]
  - ORAL MUCOSAL BLISTERING [None]
  - ORAL PAIN [None]
  - ORAL SOFT TISSUE DISORDER [None]
  - OSTEOMYELITIS [None]
  - OSTEONECROSIS [None]
  - PAIN IN EXTREMITY [None]
  - PAIN IN JAW [None]
  - PALPITATIONS [None]
  - PARAESTHESIA [None]
  - SENSATION OF HEAVINESS [None]
  - SKIN LACERATION [None]
  - SWELLING [None]
  - TOOTH INFECTION [None]
